FAERS Safety Report 17656072 (Version 1)
Quarter: 2020Q2

REPORT INFORMATION
  Report Type: Spontaneous
  Country: IT (occurrence: IT)
  Receive Date: 20200410
  Receipt Date: 20200410
  Transmission Date: 20200713
  Serious: Yes (Other)
  Sender: FDA-Public Use
  Company Number: IT-TEVA-2020-IT-1222008

PATIENT
  Age: 58 Year
  Sex: Female
  Weight: 62 kg

DRUGS (6)
  1. DECADRON [Concomitant]
     Active Substance: DEXAMETHASONE
     Indication: PREMEDICATION
     Dosage: 20MG
     Route: 041
  2. DIBASE [Concomitant]
     Active Substance: CHOLECALCIFEROL
     Indication: VITAMIN D DEFICIENCY
     Dosage: 25KU
     Route: 048
  3. CARBOPLATINO TEVA [Suspect]
     Active Substance: CARBOPLATIN
     Indication: OVARIAN CANCER
     Dosage: 530MG
     Route: 041
     Dates: start: 20181211, end: 20190109
  4. PANTOPRAZOLE [Concomitant]
     Active Substance: PANTOPRAZOLE
     Indication: PROPHYLAXIS
     Dosage: 20MG
     Route: 048
  5. TRIMETON [Concomitant]
     Active Substance: CHLORPHENIRAMINE MALEATE
     Indication: PREMEDICATION
     Dosage: 10MG
     Route: 041
  6. LOBIDIUR 5 MG/12,5 MG COMPRESSE RIVESTITE CON FILM [Concomitant]
     Indication: HYPERTENSION
     Dosage: 1 DOSAGE FORM
     Route: 048

REACTIONS (4)
  - Tinnitus [Recovered/Resolved]
  - Retching [Recovered/Resolved]
  - Feeling hot [Recovered/Resolved]
  - Laryngeal oedema [Recovered/Resolved]

NARRATIVE: CASE EVENT DATE: 20190109
